FAERS Safety Report 9207174 (Version 2)
Quarter: 2014Q1

REPORT INFORMATION
  Report Type: Spontaneous
  Country: US (occurrence: US)
  Receive Date: 20130403
  Receipt Date: 20140110
  Transmission Date: 20141002
  Serious: Yes (Other)
  Sender: FDA-Public Use
  Company Number: US-BAYER-2013-039993

PATIENT
  Sex: Female

DRUGS (5)
  1. YAZ [Suspect]
     Dosage: UNK
     Dates: start: 200902, end: 200907
  2. YASMIN [Suspect]
     Dosage: UNK
     Dates: start: 200902, end: 200907
  3. HUMALOG [Concomitant]
     Dosage: UNK
     Dates: start: 20090325
  4. GLUCOPHAGE [Concomitant]
     Dosage: UNK
     Dates: start: 20090325
  5. LOTENSIN [Concomitant]
     Dosage: UNK
     Dates: start: 20090325

REACTIONS (9)
  - Gallbladder disorder [None]
  - Cholecystitis [None]
  - Injury [None]
  - Pain [None]
  - Emotional distress [None]
  - Anxiety [None]
  - Psychological trauma [None]
  - Fear of disease [None]
  - Anhedonia [None]
